FAERS Safety Report 16256312 (Version 1)
Quarter: 2019Q2

REPORT INFORMATION
  Report Type: Spontaneous
  Country: FR (occurrence: FR)
  Receive Date: 20190430
  Receipt Date: 20190430
  Transmission Date: 20190711
  Serious: Yes (Hospitalization)
  Sender: FDA-Public Use
  Company Number: FR-MYLANLABS-2019M1040275

PATIENT
  Age: 87 Year
  Sex: Male
  Weight: 96 kg

DRUGS (3)
  1. SALBUTAMOL [Suspect]
     Active Substance: ALBUTEROL
     Indication: BRONCHITIS
     Dosage: 2 DOSAGE FORM, QD(1.25 ML/12.5 ML : 1-0-1)
     Route: 055
     Dates: start: 20181026, end: 20181105
  2. BUDESONIDE. [Suspect]
     Active Substance: BUDESONIDE
     Indication: BRONCHITIS
     Dosage: 2 DOSAGE FORM, QD(1 ML/2ML : 1-0-1)
     Route: 055
     Dates: start: 20181026, end: 20181105
  3. PYOSTACINE [Suspect]
     Active Substance: PRISTINAMYCIN
     Indication: BRONCHITIS
     Dosage: 2000 MILLIGRAM, QD(2-0-2)
     Route: 048
     Dates: start: 20181026, end: 20181105

REACTIONS (2)
  - Thermal burn [Not Recovered/Not Resolved]
  - Plantar erythema [Not Recovered/Not Resolved]

NARRATIVE: CASE EVENT DATE: 20181105
